FAERS Safety Report 16233519 (Version 2)
Quarter: 2019Q2

REPORT INFORMATION
  Report Type: Spontaneous
  Country: US (occurrence: US)
  Receive Date: 20190424
  Receipt Date: 20190514
  Transmission Date: 20190711
  Serious: Yes (Death, Hospitalization, Other)
  Sender: FDA-Public Use
  Company Number: US-JNJFOC-20190434438

PATIENT
  Age: 60 Year
  Sex: Male

DRUGS (6)
  1. RITUXIMAB. [Suspect]
     Active Substance: RITUXIMAB
  2. VENETOCLAX. [Suspect]
     Active Substance: VENETOCLAX
     Indication: MANTLE CELL LYMPHOMA STAGE IV
     Route: 065
     Dates: start: 20190226, end: 20190401
  3. BENDAMUSTINE [Suspect]
     Active Substance: BENDAMUSTINE
     Indication: MANTLE CELL LYMPHOMA STAGE IV
     Route: 065
     Dates: start: 20190405
  4. HYPER CVAD [Suspect]
     Active Substance: CYCLOPHOSPHAMIDE\CYTARABINE\DEXAMETHASONE\DOXORUBICIN\METHOTREXATE\VINCRISTINE
     Indication: MANTLE CELL LYMPHOMA STAGE IV
     Route: 065
     Dates: start: 20190420
  5. IMBRUVICA [Suspect]
     Active Substance: IBRUTINIB
     Indication: MANTLE CELL LYMPHOMA STAGE IV
     Route: 065
     Dates: start: 20190311, end: 20190401
  6. IMBRUVICA [Suspect]
     Active Substance: IBRUTINIB
     Indication: MANTLE CELL LYMPHOMA STAGE IV
     Route: 065

REACTIONS (6)
  - Acute kidney injury [Not Recovered/Not Resolved]
  - Hypercalcaemia [Unknown]
  - Disease progression [Fatal]
  - Lactic acidosis [Unknown]
  - Tachycardia [Recovering/Resolving]
  - Acute respiratory failure [Not Recovered/Not Resolved]

NARRATIVE: CASE EVENT DATE: 20190325
